FAERS Safety Report 9689178 (Version 1)
Quarter: 2013Q4

REPORT INFORMATION
  Report Type: Spontaneous
  Country: US (occurrence: US)
  Receive Date: 20131114
  Receipt Date: 20131114
  Transmission Date: 20140711
  Serious: No
  Sender: FDA-Public Use
  Company Number: US-PFIZER INC-2013325529

PATIENT
  Sex: Female

DRUGS (2)
  1. CELEBREX [Suspect]
     Indication: JOINT INJURY
     Dosage: UNK
  2. CELEBREX [Suspect]
     Indication: ARTHRITIS

REACTIONS (1)
  - Drug ineffective [Unknown]
